FAERS Safety Report 9684191 (Version 3)
Quarter: 2013Q4

REPORT INFORMATION
  Report Type: Report from Study
  Country: CA (occurrence: CA)
  Receive Date: 20131112
  Receipt Date: 20131211
  Transmission Date: 20140711
  Serious: Yes (Death)
  Sender: FDA-Public Use
  Company Number: CA-ALEXION PHARMACEUTICALS INC.-A201302976

PATIENT
  Age: 59 Year
  Sex: Male

DRUGS (2)
  1. SOLIRIS [Suspect]
     Indication: OFF LABEL USE
     Dosage: UNK
     Route: 042
     Dates: start: 20131023
  2. RITUXIMAB [Concomitant]

REACTIONS (2)
  - Death [Fatal]
  - Off label use [Unknown]
